FAERS Safety Report 7534725-6 (Version None)
Quarter: 2011Q2

REPORT INFORMATION
  Report Type: 
  Country: None (occurrence: None)
  Receive Date: 20110609
  Receipt Date: 20110425
  Transmission Date: 20111010
  Serious: No
  Sender: FDA-Public Use
  Company Number: PHHO2011FR06396

PATIENT
  Sex: Female
  Weight: 71 kg

DRUGS (3)
  1. PAROXETINE HCL [Concomitant]
     Indication: DEPRESSION
     Dosage: UNK
     Dates: start: 20060101
  2. GILENYA [Suspect]
     Indication: MULTIPLE SCLEROSIS
     Dosage: 0.5 MG, QD
     Route: 048
     Dates: start: 20110222
  3. LEVOCARNIL [Concomitant]
     Indication: FATIGUE
     Dosage: UNK
     Dates: start: 20060101

REACTIONS (1)
  - MUSCLE CONTRACTURE [None]
